FAERS Safety Report 13780773 (Version 1)
Quarter: 2017Q3

REPORT INFORMATION
  Report Type: Spontaneous
  Country: US (occurrence: US)
  Receive Date: 20170721
  Receipt Date: 20170721
  Transmission Date: 20171127
  Serious: Yes (Hospitalization)
  Sender: FDA-Public Use
  Company Number: None

PATIENT
  Age: 59 Year
  Sex: Female
  Weight: 58.6 kg

DRUGS (1)
  1. ENTYVIO [Suspect]
     Active Substance: VEDOLIZUMAB
     Indication: COLITIS ULCERATIVE
     Dosage: ?          OTHER DOSE:MG;OTHER FREQUENCY:ONE TIME DOSE;?
     Route: 041
     Dates: start: 20170717, end: 20170717

REACTIONS (9)
  - Infusion related reaction [None]
  - Diarrhoea [None]
  - Chills [None]
  - Hypertension [None]
  - Infection [None]
  - Tachycardia [None]
  - Pyrexia [None]
  - Pain [None]
  - Dyspnoea [None]

NARRATIVE: CASE EVENT DATE: 20170718
